FAERS Safety Report 8091321-2 (Version None)
Quarter: 2012Q1

REPORT INFORMATION
  Report Type: 
  Country: None (occurrence: None)
  Receive Date: 20120130
  Receipt Date: 20120130
  Transmission Date: 20120608
  Serious: Yes (Hospitalization)
  Sender: FDA-Public Use
  Company Number: None

PATIENT
  Age: 76 Year
  Sex: Male
  Weight: 96.9 kg

DRUGS (2)
  1. MIDAZOLAM [Suspect]
     Indication: COLONOSCOPY
     Dosage: 10 MG ONCE IV
     Route: 042
     Dates: start: 20111206, end: 20111206
  2. MEPERIDINE HCL [Suspect]
     Indication: COLONOSCOPY
     Dosage: 300 MG ONCE IV
     Route: 042
     Dates: start: 20111206, end: 20111206

REACTIONS (2)
  - RESPIRATORY DEPRESSION [None]
  - SEDATION [None]
